FAERS Safety Report 18339886 (Version 1)
Quarter: 2020Q4

REPORT INFORMATION
  Report Type: Spontaneous
  Country: US (occurrence: US)
  Receive Date: 20201002
  Receipt Date: 20201002
  Transmission Date: 20210113
  Serious: Yes (Disabling)
  Sender: FDA-Public Use
  Company Number: US-PFIZER INC-2020206447

PATIENT

DRUGS (1)
  1. PREMARIN [Suspect]
     Active Substance: ESTROGENS, CONJUGATED
     Dosage: UNK, (STRENGTH: 0.625 MG/GM, QUANTITY FOR 90 DAYS: 18 GRAMS)

REACTIONS (3)
  - Blindness [Unknown]
  - Malaise [Unknown]
  - Product prescribing error [Unknown]
